FAERS Safety Report 25510285 (Version 2)
Quarter: 2025Q3

REPORT INFORMATION
  Report Type: Spontaneous
  Country: BR (occurrence: BR)
  Receive Date: 20250703
  Receipt Date: 20250930
  Transmission Date: 20251020
  Serious: Yes (Other)
  Sender: REGENERON
  Company Number: BR-BAYER-2025A086939

PATIENT
  Sex: Male

DRUGS (2)
  1. EYLEA [Suspect]
     Active Substance: AFLIBERCEPT
     Indication: Diabetic retinopathy
     Route: 031
  2. EYLEA [Suspect]
     Active Substance: AFLIBERCEPT
     Indication: Macular oedema

REACTIONS (3)
  - Macular oedema [Unknown]
  - Diabetic retinopathy [Unknown]
  - Product dose omission issue [Unknown]
